FAERS Safety Report 11823372 (Version 1)
Quarter: 2015Q4

REPORT INFORMATION
  Report Type: Spontaneous
  Country: RO (occurrence: RO)
  Receive Date: 20151210
  Receipt Date: 20151210
  Transmission Date: 20160305
  Serious: Yes (Hospitalization)
  Sender: FDA-Public Use
  Company Number: RO-ASTRAZENECA-2015SF21253

PATIENT
  Sex: Female

DRUGS (1)
  1. CRESTOR [Suspect]
     Active Substance: ROSUVASTATIN CALCIUM
     Indication: HYPERCHOLESTEROLAEMIA
     Route: 048
     Dates: start: 201508

REACTIONS (1)
  - Myocardial infarction [Unknown]
